FAERS Safety Report 5399033-0 (Version None)
Quarter: 2007Q3

REPORT INFORMATION
  Report Type: 
  Country: None (occurrence: None)
  Receive Date: 20070723
  Receipt Date: 20070723
  Transmission Date: 20080115
  Serious: Yes (Other)
  Sender: FDA-Public Use
  Company Number: None

PATIENT
  Age: 66 Year
  Sex: Female
  Weight: 78.4723 kg

DRUGS (2)
  1. PROCAINAMIDE [Suspect]
     Indication: ATRIAL FIBRILLATION
     Dosage: 1 TABLET 3 TIMES A DAY PO
     Route: 048
     Dates: start: 20070410, end: 20070704
  2. PROCAINAMIDE [Suspect]
     Indication: HEART RATE DECREASED
     Dosage: 1 TABLET 3 TIMES A DAY PO
     Route: 048
     Dates: start: 20070410, end: 20070704

REACTIONS (3)
  - DEPRESSION [None]
  - LUPUS-LIKE SYNDROME [None]
  - THERAPEUTIC RESPONSE UNEXPECTED WITH DRUG SUBSTITUTION [None]
